FAERS Safety Report 21440378 (Version 1)
Quarter: 2022Q4

REPORT INFORMATION
  Report Type: Spontaneous
  Country: US (occurrence: US)
  Receive Date: 20221011
  Receipt Date: 20221011
  Transmission Date: 20230113
  Serious: Yes (Hospitalization)
  Sender: FDA-Public Use
  Company Number: US-AMNEAL PHARMACEUTICALS-2022-AMRX-02700

PATIENT
  Age: 55 Year
  Sex: Female

DRUGS (2)
  1. LIORESAL [Suspect]
     Active Substance: BACLOFEN
     Dosage: 1408.1 ?G, \DAY (ALSO REPORTED AS 1400 ?G/DAY)
     Route: 037
     Dates: end: 20220114
  2. LIORESAL [Suspect]
     Active Substance: BACLOFEN
     Dosage: 750 ?G, \DAY
     Route: 037
     Dates: start: 20220114

REACTIONS (3)
  - Confusional state [Unknown]
  - Urinary tract infection [Unknown]
  - Device failure [Recovered/Resolved]

NARRATIVE: CASE EVENT DATE: 20220101
